FAERS Safety Report 6102518-2 (Version None)
Quarter: 2009Q1

REPORT INFORMATION
  Report Type: 
  Country: None (occurrence: None)
  Receive Date: 20090304
  Receipt Date: 20080718
  Transmission Date: 20090719
  Serious: No
  Sender: FDA-Public Use
  Company Number: A0738446A

PATIENT
  Sex: Male

DRUGS (5)
  1. REQUIP [Suspect]
     Indication: RESTLESS LEGS SYNDROME
     Dosage: 4MG AT NIGHT
     Route: 048
  2. LISINOPRIL [Concomitant]
  3. KLONOPIN [Concomitant]
  4. LORAZEPAM [Concomitant]
  5. IRON [Concomitant]

REACTIONS (5)
  - DRUG INEFFECTIVE [None]
  - FULL BLOOD COUNT ABNORMAL [None]
  - SURGERY [None]
  - TRANSFUSION [None]
  - TREMOR [None]
